FAERS Safety Report 11989355 (Version 1)
Quarter: 2016Q1

REPORT INFORMATION
  Report Type: Spontaneous
  Country: US (occurrence: US)
  Receive Date: 20160202
  Receipt Date: 20160202
  Transmission Date: 20160526
  Serious: Yes (Hospitalization, Other)
  Sender: FDA-Public Use
  Company Number: US-CELGENEUS-USA-2016015966

PATIENT
  Sex: Female
  Weight: 80.36 kg

DRUGS (1)
  1. REVLIMID [Suspect]
     Active Substance: LENALIDOMIDE
     Indication: PLASMA CELL MYELOMA
     Dosage: 15 MILLIGRAM
     Route: 048
     Dates: start: 201512

REACTIONS (3)
  - Decreased appetite [Recovered/Resolved]
  - Full blood count decreased [Recovered/Resolved]
  - Asthenia [Recovered/Resolved]
